FAERS Safety Report 5033634-4 (Version None)
Quarter: 2006Q2

REPORT INFORMATION
  Report Type: 
  Country: None (occurrence: None)
  Receive Date: 20060622
  Receipt Date: 20060605
  Transmission Date: 20061013
  Serious: Yes (Hospitalization)
  Sender: FDA-Public Use
  Company Number: CA200606001501

PATIENT
  Age: 66 Year
  Sex: Male

DRUGS (10)
  1. FORTEO [Suspect]
     Indication: OSTEOPOROSIS
     Dosage: 20 UG, DAILY (1/D)
     Dates: start: 20060411
  2. FORTEO [Concomitant]
  3. SPIRIVA [Concomitant]
  4. ADVAIR DISKUS 100/50 [Concomitant]
  5. IMURAN [Concomitant]
  6. ATIVAN [Concomitant]
  7. ASCORBIC ACID [Concomitant]
  8. VITAMIN D [Concomitant]
  9. CALCIUM GLUCONATE [Concomitant]
  10. CIPROFLOXACIN HCL [Concomitant]

REACTIONS (2)
  - ASTHENIA [None]
  - RESPIRATORY DISTRESS [None]
